FAERS Safety Report 5742233-8 (Version None)
Quarter: 2008Q2

REPORT INFORMATION
  Report Type: 
  Country: None (occurrence: None)
  Receive Date: 20080514
  Receipt Date: 20080514
  Transmission Date: 20081010
  Serious: Yes (Other)
  Sender: FDA-Public Use
  Company Number: None

PATIENT
  Age: 58 Year
  Sex: Female
  Weight: 74.8435 kg

DRUGS (2)
  1. VERAPAMIL [Suspect]
     Indication: BLOOD PRESSURE INCREASED
     Dosage: 1 TAB DAILY PO
     Route: 048
     Dates: start: 20080409, end: 20080423
  2. VERAPAMIL [Suspect]
     Indication: BLOOD PRESSURE INCREASED
     Dosage: 1 TAB DAILY PO
     Route: 048
     Dates: start: 20080426, end: 20080503

REACTIONS (4)
  - BLOOD PRESSURE INCREASED [None]
  - DIZZINESS [None]
  - PHARMACEUTICAL PRODUCT COMPLAINT [None]
  - THERAPEUTIC RESPONSE UNEXPECTED WITH DRUG SUBSTITUTION [None]
